FAERS Safety Report 6762147-4 (Version None)
Quarter: 2010Q2

REPORT INFORMATION
  Report Type: 
  Country: None (occurrence: None)
  Receive Date: 20100609
  Receipt Date: 20100531
  Transmission Date: 20101027
  Serious: Yes (Death, Hospitalization)
  Sender: FDA-Public Use
  Company Number: GR-ABBOTT-09P-066-0562945-00

PATIENT
  Sex: Female
  Weight: 56 kg

DRUGS (12)
  1. ZEMPLAR [Suspect]
     Indication: HYPERPARATHYROIDISM SECONDARY
     Route: 042
     Dates: start: 20080208, end: 20090306
  2. RENAGEL [Concomitant]
     Indication: HYPERPHOSPHATAEMIA
     Dosage: 2 CAPSULES IN AM; 3 CAPSULES AT NOON; 2 CAPSULES IN THE PM
     Route: 048
     Dates: start: 20060329, end: 20090317
  3. CINACALCET HYDROCHLORIDE [Concomitant]
     Indication: HYPERCALCAEMIA
     Route: 048
     Dates: start: 20060628, end: 20090317
  4. ISCOVER [Concomitant]
     Indication: THROMBOSIS PROPHYLAXIS
     Route: 048
     Dates: start: 20061101, end: 20090317
  5. MIACALCIN [Concomitant]
     Indication: OSTEOPOROSIS
     Route: 045
     Dates: start: 20081030, end: 20090317
  6. LEPUR [Concomitant]
     Indication: DYSLIPIDAEMIA
     Route: 048
     Dates: start: 20080220, end: 20090317
  7. FILICINE [Concomitant]
     Indication: VITAMIN SUPPLEMENTATION
     Route: 048
     Dates: start: 20080903, end: 20090317
  8. AMLOPEN [Concomitant]
     Indication: HYPERTENSION
     Route: 048
     Dates: start: 20071128, end: 20090317
  9. RETACRIT [Concomitant]
     Indication: ANAEMIA
     Route: 042
     Dates: start: 20081105, end: 20090317
  10. SUPERAMIN AMP [Concomitant]
     Indication: SUPPLEMENTATION THERAPY
     Route: 042
     Dates: start: 20051104, end: 20090317
  11. INNOHEP [Concomitant]
     Indication: ANTICOAGULANT THERAPY
     Dates: start: 20080305, end: 20090317
  12. ANAMIFER [Concomitant]
     Indication: IRON DEFICIENCY ANAEMIA
     Dates: start: 20080507, end: 20090317

REACTIONS (7)
  - ACUTE RESPIRATORY FAILURE [None]
  - COMMUNICATION DISORDER [None]
  - CYANOSIS [None]
  - DYSPNOEA [None]
  - HYPERCALCAEMIA [None]
  - HYPERCAPNIA [None]
  - RESPIRATORY TRACT INFECTION [None]
